FAERS Safety Report 15670406 (Version 2)
Quarter: 2019Q2

REPORT INFORMATION
  Report Type: Spontaneous
  Country: US (occurrence: US)
  Receive Date: 20181129
  Receipt Date: 20190410
  Transmission Date: 20190711
  Serious: No
  Sender: FDA-Public Use
  Company Number: US-PFIZER INC-2018490599

PATIENT
  Age: 53 Year
  Sex: Female

DRUGS (7)
  1. GABAPENTIN. [Suspect]
     Active Substance: GABAPENTIN
     Dosage: UNK
  2. HYDROCODONE [Suspect]
     Active Substance: HYDROCODONE
     Dosage: UNK
  3. DICLOXACILLIN [Suspect]
     Active Substance: DICLOXACILLIN
     Dosage: UNK
  4. ASPIRIN [ACETYLSALICYLIC ACID] [Suspect]
     Active Substance: ASPIRIN
     Dosage: UNK
  5. VICODIN [Suspect]
     Active Substance: ACETAMINOPHEN\HYDROCODONE BITARTRATE
     Dosage: UNK
  6. LITHIUM. [Suspect]
     Active Substance: LITHIUM
     Dosage: UNK
  7. IRBESARTAN. [Suspect]
     Active Substance: IRBESARTAN
     Dosage: UNK

REACTIONS (1)
  - Drug hypersensitivity [Unknown]
